FAERS Safety Report 15621854 (Version 1)
Quarter: 2018Q4

REPORT INFORMATION
  Report Type: Spontaneous
  Country: US (occurrence: US)
  Receive Date: 20181115
  Receipt Date: 20181115
  Transmission Date: 20190205
  Serious: No
  Sender: FDA-Public Use
  Company Number: US-PFIZER INC-2018458494

PATIENT
  Age: 69 Year
  Sex: Male
  Weight: 113.4 kg

DRUGS (2)
  1. NAVANE [Suspect]
     Active Substance: THIOTHIXENE
     Indication: BIPOLAR DISORDER
     Dosage: UNK
     Route: 048
  2. NAVANE [Suspect]
     Active Substance: THIOTHIXENE
     Indication: SCHIZOPHRENIA

REACTIONS (2)
  - Extrapyramidal disorder [Unknown]
  - Condition aggravated [Unknown]
